FAERS Safety Report 4815198-0 (Version None)
Quarter: 2005Q4

REPORT INFORMATION
  Report Type: 
  Country: None (occurrence: None)
  Receive Date: 20051026
  Receipt Date: 20051021
  Transmission Date: 20060501
  Serious: Yes (Other)
  Sender: FDA-Public Use
  Company Number: SUSI-2005-00699

PATIENT
  Age: 46 Year
  Sex: Female
  Weight: 63.5 kg

DRUGS (5)
  1. AGRYLIN [Suspect]
     Indication: RAYNAUD'S PHENOMENON
     Dosage: SEE IMAGE
     Dates: start: 20050801, end: 20050801
  2. AGRYLIN [Suspect]
     Indication: RAYNAUD'S PHENOMENON
     Dosage: SEE IMAGE
     Dates: end: 20050801
  3. AGRYLIN [Suspect]
     Indication: RAYNAUD'S PHENOMENON
     Dosage: SEE IMAGE
     Dates: start: 20050801, end: 20050914
  4. LOVASTATIN [Concomitant]
  5. VICODIN [Concomitant]

REACTIONS (7)
  - BALANCE DISORDER [None]
  - EXTRASYSTOLES [None]
  - FALL [None]
  - HEART RATE INCREASED [None]
  - HYPERHIDROSIS [None]
  - OFF LABEL USE [None]
  - PALPITATIONS [None]
